FAERS Safety Report 7091604-9 (Version None)
Quarter: 2010Q4

REPORT INFORMATION
  Report Type: 
  Country: None (occurrence: None)
  Receive Date: 20101109
  Receipt Date: 20100524
  Transmission Date: 20110411
  Serious: Yes (Other)
  Sender: FDA-Public Use
  Company Number: US-PFIZER INC-2010140607

PATIENT
  Sex: Male

DRUGS (1)
  1. IBUPROFEN AND PSEUDOEPHEDRINE HCL [Suspect]
     Indication: PYREXIA
     Route: 048

REACTIONS (2)
  - DRUG INEFFECTIVE [None]
  - PRODUCT QUALITY ISSUE [None]
